FAERS Safety Report 8303506-8 (Version None)
Quarter: 2012Q1

REPORT INFORMATION
  Report Type: 
  Country: None (occurrence: None)
  Receive Date: 20120330
  Receipt Date: 20120316
  Transmission Date: 20120608
  Serious: Yes (Hospitalization)
  Sender: FDA-Public Use
  Company Number: GAM-024-12-DE

PATIENT
  Age: 40 Year
  Sex: Male

DRUGS (8)
  1. PREDNISOLONE [Suspect]
     Indication: DIARRHOEA
     Dosage: ORAL
     Route: 048
     Dates: start: 20110813, end: 20110923
  2. OMEPRAZOLE [Concomitant]
  3. VANCOMYCIN [Concomitant]
  4. OCTAGAM [Suspect]
     Indication: INFECTION
     Dosage: INTRAVENOUS (NOT OTHERWISE SPECIFIED)
     Route: 042
     Dates: start: 20110723, end: 20110813
  5. SULFAMETHOXAZOLE AND TRIMETHOPRIM [Concomitant]
  6. FLUCONAZOLE [Concomitant]
  7. LEVOFLOXACIN [Concomitant]
  8. MESALAMINE [Concomitant]

REACTIONS (3)
  - ARTERIAL THROMBOSIS LIMB [None]
  - COLITIS ULCERATIVE [None]
  - PYREXIA [None]
